FAERS Safety Report 12899915 (Version 4)
Quarter: 2016Q4

REPORT INFORMATION
  Report Type: Spontaneous
  Country: US (occurrence: US)
  Receive Date: 20161101
  Receipt Date: 20161208
  Transmission Date: 20170207
  Serious: Yes (Other)
  Sender: FDA-Public Use
  Company Number: US-PFIZER INC-2016502018

PATIENT
  Age: 73 Year
  Sex: Male

DRUGS (5)
  1. MAGNESIUM CITRATE. [Concomitant]
     Active Substance: MAGNESIUM CITRATE
     Dosage: UNK
  2. SUTENT [Suspect]
     Active Substance: SUNITINIB MALATE
     Indication: RENAL CANCER METASTATIC
     Dosage: 37.5 MG, CYCLIC (2 WEEKS ON/1 WEEK OFF)
     Dates: start: 20161026, end: 20161115
  3. LINZESS [Concomitant]
     Active Substance: LINACLOTIDE
     Dosage: UNK
  4. SENNA [Concomitant]
     Active Substance: SENNA LEAF\SENNOSIDES\SENNOSIDES A AND B
     Indication: FAECES SOFT
  5. LOSARTAN. [Concomitant]
     Active Substance: LOSARTAN
     Dosage: UNK

REACTIONS (12)
  - Abdominal pain upper [Unknown]
  - Ear disorder [Unknown]
  - Gait disturbance [Unknown]
  - Constipation [Unknown]
  - Language disorder [Unknown]
  - Asthenia [Unknown]
  - Hypertension [Unknown]
  - Amnesia [Unknown]
  - Poor quality sleep [Unknown]
  - Insomnia [Unknown]
  - Loss of bladder sensation [Unknown]
  - Neoplasm progression [Unknown]
